FAERS Safety Report 24098240 (Version 1)
Quarter: 2024Q3

REPORT INFORMATION
  Report Type: Spontaneous
  Country: EG (occurrence: EG)
  Receive Date: 20240716
  Receipt Date: 20240716
  Transmission Date: 20241017
  Serious: Yes (Hospitalization)
  Sender: EMD SERONO INC
  Company Number: EG-Merck Healthcare KGaA-2024037532

PATIENT
  Age: 35 Year
  Sex: Female

DRUGS (1)
  1. REBIF [Suspect]
     Active Substance: INTERFERON BETA-1A
     Indication: Multiple sclerosis
     Route: 058
     Dates: start: 20240224

REACTIONS (2)
  - Dyspnoea [Recovered/Resolved]
  - Relapsing-remitting multiple sclerosis [Unknown]

NARRATIVE: CASE EVENT DATE: 20240630
